FAERS Safety Report 26011117 (Version 1)
Quarter: 2025Q4

REPORT INFORMATION
  Report Type: Spontaneous
  Country: US (occurrence: None)
  Receive Date: 20251106
  Receipt Date: 20251106
  Transmission Date: 20260117
  Serious: Yes (Hospitalization)
  Sender: FDA-CTU
  Company Number: None

PATIENT
  Age: 74 Year
  Sex: Male

DRUGS (2)
  1. TRANEXAMIC ACID [Suspect]
     Active Substance: TRANEXAMIC ACID
     Indication: Hereditary haemorrhagic telangiectasia
     Dosage: FREQUENCY : 3 TIMES A DAY;?
     Route: 048
     Dates: start: 20251002
  2. OCTREOTIDE ACETATE [Suspect]
     Active Substance: OCTREOTIDE ACETATE
     Indication: Hereditary haemorrhagic telangiectasia
     Dosage: OTHER STRENGTH : 100MCG/ML;?FREQUENCY : TWICE A DAY;?
     Route: 058
     Dates: start: 20251002

REACTIONS (2)
  - Gastrointestinal haemorrhage [None]
  - Blood pressure abnormal [None]

NARRATIVE: CASE EVENT DATE: 20251020
